FAERS Safety Report 15275059 (Version 2)
Quarter: 2018Q3

REPORT INFORMATION
  Report Type: Spontaneous
  Country: US (occurrence: US)
  Receive Date: 20180814
  Receipt Date: 20180907
  Transmission Date: 20181010
  Serious: No
  Sender: FDA-Public Use
  Company Number: US-PFIZER INC-2018325909

PATIENT
  Age: 86 Year
  Sex: Male

DRUGS (1)
  1. LYRICA [Suspect]
     Active Substance: PREGABALIN
     Indication: PARKINSON^S DISEASE
     Dosage: 150 MG, 2X/DAY
     Route: 048
     Dates: start: 201607, end: 20180802

REACTIONS (2)
  - Product use in unapproved indication [Recovered/Resolved]
  - Withdrawal syndrome [Recovered/Resolved]

NARRATIVE: CASE EVENT DATE: 201607
